FAERS Safety Report 7781819-6 (Version None)
Quarter: 2011Q3

REPORT INFORMATION
  Report Type: 
  Country: None (occurrence: None)
  Receive Date: 20110927
  Receipt Date: 20110922
  Transmission Date: 20111222
  Serious: Yes (Other)
  Sender: FDA-Public Use
  Company Number: ES-GLAXOSMITHKLINE-B0750600A

PATIENT
  Age: 83 Year
  Sex: Male

DRUGS (1)
  1. REQUIP [Suspect]
     Indication: PARKINSON'S DISEASE
     Dosage: 8MG PER DAY
     Route: 065

REACTIONS (4)
  - HALLUCINATION [None]
  - DYSKINESIA [None]
  - CONFUSIONAL STATE [None]
  - SOMNOLENCE [None]
